FAERS Safety Report 12617104 (Version 1)
Quarter: 2016Q3

REPORT INFORMATION
  Report Type: Report from Study
  Country: FR (occurrence: FR)
  Receive Date: 20160803
  Receipt Date: 20160803
  Transmission Date: 20161109
  Serious: Yes (Other)
  Sender: FDA-Public Use
  Company Number: FR-ROCHE-1806312

PATIENT

DRUGS (2)
  1. IRINOTECAN [Suspect]
     Active Substance: IRINOTECAN
     Indication: GLIOBLASTOMA
     Dosage: DOSE: 340 MG/M2 (WITH CONCOMITANT ENZYME-INDUCING ANTIEPILEPTIC DRUGS) OR 125 MG/M 2 (WITHOUT CONCOM
     Route: 065
  2. BEVACIZUMAB [Suspect]
     Active Substance: BEVACIZUMAB
     Indication: GLIOBLASTOMA
     Dosage: EACH CHEMOTHERAPY CYCLE WAS REPEATED EVERY 15 DAYS
     Route: 065

REACTIONS (7)
  - Thrombocytopenia [Unknown]
  - Lymphopenia [Unknown]
  - Anaemia [Unknown]
  - Neutropenia [Unknown]
  - Proteinuria [Unknown]
  - Hepatotoxicity [Unknown]
  - Leukopenia [Unknown]
